FAERS Safety Report 21297592 (Version 1)
Quarter: 2022Q3

REPORT INFORMATION
  Report Type: Spontaneous
  Country: US (occurrence: US)
  Receive Date: 20220906
  Receipt Date: 20220906
  Transmission Date: 20221027
  Serious: Yes (Other)
  Sender: FDA-Public Use
  Company Number: US-PFIZER INC-202201117368

PATIENT
  Age: 37 Year
  Sex: Male

DRUGS (1)
  1. XELJANZ [Suspect]
     Active Substance: TOFACITINIB CITRATE
     Dosage: 5 MG, 2X/DAY (5 MG 1 TABLET TWICE A DAY)
     Dates: start: 20220502

REACTIONS (3)
  - Colitis ulcerative [Recovering/Resolving]
  - Arthralgia [Not Recovered/Not Resolved]
  - Drug ineffective [Unknown]
